FAERS Safety Report 9187997 (Version 7)
Quarter: 2015Q1

REPORT INFORMATION
  Report Type: Report from Study
  Country: US (occurrence: US)
  Receive Date: 20130325
  Receipt Date: 20150128
  Transmission Date: 20150721
  Serious: Yes (Hospitalization, Other)
  Sender: FDA-Public Use
  Company Number: US-GLAXOSMITHKLINE-A0969266A

PATIENT
  Sex: Female

DRUGS (4)
  1. FLUTICASONE PROPIONATE+SALMETEROL XINAFOATE [Suspect]
     Active Substance: FLUTICASONE PROPIONATE\SALMETEROL XINAFOATE
     Indication: CHRONIC OBSTRUCTIVE PULMONARY DISEASE
     Dosage: UNKNOWN DOSING
     Route: 055
  2. SULPHA [Suspect]
     Active Substance: UNSPECIFIED INGREDIENT
     Indication: PRODUCT USED FOR UNKNOWN INDICATION
  3. SALBUTAMOL SULPHATE [Suspect]
     Active Substance: ALBUTEROL SULFATE
     Indication: CHRONIC OBSTRUCTIVE PULMONARY DISEASE
     Dosage: UNKNOWN DOSING
     Route: 055
  4. EPINEPHRINE. [Suspect]
     Active Substance: EPINEPHRINE
     Indication: PRODUCT USED FOR UNKNOWN INDICATION
     Dosage: UNKNOWN DOSING
     Route: 065

REACTIONS (36)
  - Dyspnoea [Unknown]
  - Skin disorder [Unknown]
  - Epstein-Barr virus infection [Unknown]
  - Drug hypersensitivity [Unknown]
  - Sensory loss [Unknown]
  - Feeling abnormal [Unknown]
  - Somnolence [Unknown]
  - Adverse event [Unknown]
  - Skin lesion [Unknown]
  - Scar [Unknown]
  - Alopecia [Unknown]
  - Wheezing [Unknown]
  - Asthma [Unknown]
  - Sleep apnoea syndrome [Unknown]
  - Viral infection [Unknown]
  - Hypertrophic cardiomyopathy [Unknown]
  - Skin ulcer [Unknown]
  - Erythema [Unknown]
  - Chronic fatigue syndrome [Unknown]
  - Oropharyngeal swelling [Unknown]
  - Intervertebral disc degeneration [Unknown]
  - Rash generalised [Unknown]
  - Contusion [Unknown]
  - Motor dysfunction [Unknown]
  - Fibromyalgia [Unknown]
  - Stab wound [Unknown]
  - Oxygen saturation decreased [Unknown]
  - Osteoporosis [Unknown]
  - Carpal tunnel syndrome [Unknown]
  - Pneumonia [Unknown]
  - Cervical vertebral fracture [Unknown]
  - Anxiety [Unknown]
  - Exposure to toxic agent [Unknown]
  - Immune system disorder [Unknown]
  - Malaise [Unknown]
  - Lyme disease [Unknown]

NARRATIVE: CASE EVENT DATE: 2012
